FAERS Safety Report 17673153 (Version 3)
Quarter: 2020Q2

REPORT INFORMATION
  Report Type: Report from Study
  Country: US (occurrence: US)
  Receive Date: 20200415
  Receipt Date: 20200515
  Transmission Date: 20200713
  Serious: Yes (Hospitalization, Other)
  Sender: FDA-Public Use
  Company Number: US-GILEAD-2020-0459206

PATIENT
  Age: 29 Year
  Sex: Male

DRUGS (1)
  1. AZTREONAM LYSINE [Suspect]
     Active Substance: AZTREONAM LYSINE
     Indication: CYSTIC FIBROSIS
     Dosage: 75 MG, TID, EVERY OTHER MONTH
     Route: 055

REACTIONS (8)
  - Lacrimation increased [Unknown]
  - Incorrect dose administered [Unknown]
  - Dysgeusia [Unknown]
  - Visual impairment [Recovered/Resolved]
  - Pruritus [Unknown]
  - Cystic fibrosis [Recovered/Resolved]
  - Anxiety [Recovering/Resolving]
  - Drug hypersensitivity [Not Recovered/Not Resolved]

NARRATIVE: CASE EVENT DATE: 202003
